FAERS Safety Report 18183753 (Version 1)
Quarter: 2020Q3

REPORT INFORMATION
  Report Type: Spontaneous
  Country: US (occurrence: US)
  Receive Date: 20200822
  Receipt Date: 20200822
  Transmission Date: 20201103
  Serious: No
  Sender: FDA-Public Use
  Company Number: US-009507513-2008USA010684

PATIENT
  Age: 48 Year
  Sex: Female

DRUGS (2)
  1. KEYTRUDA [Suspect]
     Active Substance: PEMBROLIZUMAB
  2. LENVATINIB MESYLATE [Suspect]
     Active Substance: LENVATINIB MESYLATE
     Indication: UTERINE CANCER
     Dosage: TOTAL DAILY DOSE: 12 GRAM
     Route: 048
     Dates: start: 20200730

REACTIONS (3)
  - Hypertension [Unknown]
  - Dysphonia [Unknown]
  - Rash [Unknown]

NARRATIVE: CASE EVENT DATE: 202007
